FAERS Safety Report 22014359 (Version 1)
Quarter: 2023Q1

REPORT INFORMATION
  Report Type: Spontaneous
  Country: NL (occurrence: NL)
  Receive Date: 20230221
  Receipt Date: 20230221
  Transmission Date: 20230418
  Serious: Yes (Life-Threatening, Other)
  Sender: FDA-Public Use
  Company Number: NL-LRB-00865713

PATIENT
  Sex: Female
  Weight: 56 kg

DRUGS (6)
  1. LISINOPRIL [Interacting]
     Active Substance: LISINOPRIL
     Indication: Hypertension
     Dosage: 1X PER DAY 1 PIECE
     Route: 065
     Dates: start: 20180823, end: 20230101
  2. ALTEPLASE [Interacting]
     Active Substance: ALTEPLASE
     Indication: Cerebral infarction
     Dosage: 0,9 MG/KG, MAX. 90 MG
     Route: 065
     Dates: start: 20221231
  3. ALTEPLASE [Interacting]
     Active Substance: ALTEPLASE
     Indication: Thrombolysis
  4. ACENOCOUMAROL [Concomitant]
     Active Substance: ACENOCOUMAROL
     Indication: Product used for unknown indication
     Dosage: TABLET, 1 MG (MILLIGRAM)
     Route: 065
  5. CALCIUM CARBONATE\CHOLECALCIFEROL [Concomitant]
     Active Substance: CALCIUM CARBONATE\CHOLECALCIFEROL
     Indication: Product used for unknown indication
     Dosage: CHEWABLE TABLET, 500 MG (MILLIGRAMS)/800 UNITS
     Route: 065
  6. METOPROLOL SUCCINATE [Concomitant]
     Active Substance: METOPROLOL SUCCINATE
     Indication: Product used for unknown indication
     Dosage: MODIFIED-RELEASE TABLET, 100 MG (MILLIGRAMS)
     Route: 065

REACTIONS (6)
  - Dyspnoea [Recovered/Resolved]
  - Hypersensitivity [Recovered/Resolved]
  - Lip swelling [Recovered/Resolved]
  - Pulmonary oedema [Recovered/Resolved]
  - Respiratory failure [Recovered/Resolved]
  - Drug interaction [Recovered/Resolved]
